FAERS Safety Report 6821205-6 (Version None)
Quarter: 2010Q2

REPORT INFORMATION
  Report Type: 
  Country: None (occurrence: None)
  Receive Date: 20100630
  Receipt Date: 20100618
  Transmission Date: 20101027
  Serious: Yes (Other)
  Sender: FDA-Public Use
  Company Number: PHHO2010AU06301

PATIENT
  Age: 66 Year
  Sex: Female
  Weight: 117.028 kg

DRUGS (1)
  1. VISUDYNE [Suspect]
     Indication: CHOROID MELANOMA
     Dosage: 6.6 ML ONCE IV
     Route: 042
     Dates: start: 20100312, end: 20100312

REACTIONS (3)
  - OFF LABEL USE [None]
  - VISUAL ACUITY REDUCED [None]
  - VITREOUS HAEMORRHAGE [None]
